FAERS Safety Report 5309805-6 (Version None)
Quarter: 2007Q2

REPORT INFORMATION
  Report Type: 
  Country: None (occurrence: None)
  Receive Date: 20070427
  Receipt Date: 20060925
  Transmission Date: 20071010
  Serious: No
  Sender: FDA-Public Use
  Company Number: US-GLAXOSMITHKLINE-A0621286A

PATIENT
  Age: 30 Year
  Sex: Female

DRUGS (3)
  1. ZOFRAN [Suspect]
     Indication: PROPHYLAXIS OF NAUSEA AND VOMITING
     Dosage: 8MG VARIABLE DOSE
     Route: 048
     Dates: start: 20060923
  2. OXYCODONE HCL [Concomitant]
  3. GABAPENTIN [Concomitant]

REACTIONS (2)
  - NAUSEA [None]
  - VOMITING [None]
